FAERS Safety Report 20827333 (Version 1)
Quarter: 2022Q2

REPORT INFORMATION
  Report Type: Report from Study
  Country: IT (occurrence: IT)
  Receive Date: 20220513
  Receipt Date: 20220513
  Transmission Date: 20220721
  Serious: Yes (Life-Threatening, Other)
  Sender: FDA-Public Use
  Company Number: None

PATIENT
  Age: 66 Year
  Sex: Female

DRUGS (10)
  1. XANAX [Suspect]
     Active Substance: ALPRAZOLAM
     Indication: Depression
     Dosage: UNK
  2. LERCANIDIPINE [Concomitant]
     Active Substance: LERCANIDIPINE
  3. LERCANIDIPINE [Concomitant]
     Active Substance: LERCANIDIPINE
  4. VENTOLIN [Concomitant]
     Active Substance: ALBUTEROL SULFATE
  5. VENLAFAXINE [Concomitant]
     Active Substance: VENLAFAXINE HYDROCHLORIDE
  6. VENLAFAXINE [Concomitant]
     Active Substance: VENLAFAXINE HYDROCHLORIDE
  7. AMISULPRIDE [Concomitant]
     Active Substance: AMISULPRIDE
  8. AMISULPRIDE [Concomitant]
     Active Substance: AMISULPRIDE
  9. LAMOTRIGINE [Concomitant]
     Active Substance: LAMOTRIGINE
  10. LAMOTRIGINE [Concomitant]
     Active Substance: LAMOTRIGINE

REACTIONS (3)
  - Overdose [Recovered/Resolved]
  - Respiratory failure [Recovered/Resolved]
  - Toxicity to various agents [Recovered/Resolved]

NARRATIVE: CASE EVENT DATE: 20220106
